FAERS Safety Report 6444030-7 (Version None)
Quarter: 2009Q4

REPORT INFORMATION
  Report Type: 
  Country: None (occurrence: None)
  Receive Date: 20091116
  Receipt Date: 20091116
  Transmission Date: 20100525
  Serious: Yes (Hospitalization)
  Sender: FDA-Public Use
  Company Number: None

PATIENT
  Age: 69 Year
  Sex: Male

DRUGS (2)
  1. AMIODARONE HCL [Suspect]
     Indication: ATRIAL FIBRILLATION
     Dosage: 200 MG EVERY DAY PO
     Route: 048
     Dates: start: 20011030, end: 20091016
  2. METHOTREXATE [Suspect]
     Indication: RHEUMATOID ARTHRITIS
     Dosage: 10 MG QWEEK PO
     Route: 048
     Dates: start: 20090827, end: 20091006

REACTIONS (3)
  - PNEUMONIA [None]
  - PULMONARY HYPERTENSION [None]
  - PULMONARY OEDEMA [None]
